FAERS Safety Report 20510977 (Version 7)
Quarter: 2022Q3

REPORT INFORMATION
  Report Type: Report from Study
  Country: CN (occurrence: CN)
  Receive Date: 20220224
  Receipt Date: 20220812
  Transmission Date: 20221027
  Serious: Yes (Life-Threatening, Other)
  Sender: FDA-Public Use
  Company Number: CN-BoehringerIngelheim-2022-BI-154400

PATIENT
  Age: 64 Year
  Sex: Male
  Weight: 44 kg

DRUGS (20)
  1. TENECTEPLASE [Suspect]
     Active Substance: TENECTEPLASE
     Indication: Ischaemic stroke
     Dosage: ROUTE:- INTRAVENOUS BOLUS
     Route: 040
     Dates: start: 20220214, end: 20220214
  2. OXIRACETAM [Concomitant]
     Active Substance: OXIRACETAM
     Indication: Ischaemic stroke
     Route: 042
     Dates: start: 20220214
  3. EDARAVONE [Concomitant]
     Active Substance: EDARAVONE
     Indication: Ischaemic stroke
     Route: 042
     Dates: start: 20220214, end: 20220223
  4. NALMEFENE [Concomitant]
     Active Substance: NALMEFENE
     Indication: Ischaemic stroke
     Route: 042
     Dates: start: 20220214, end: 20220215
  5. MANNITOL [Concomitant]
     Active Substance: MANNITOL
     Indication: Dehydration
     Route: 042
     Dates: start: 20220214, end: 20220225
  6. CEREBROPROTEIN HYDROLYSATE;TROXERUTIN [Concomitant]
     Indication: Ischaemic stroke
     Route: 042
     Dates: start: 20220214, end: 20220214
  7. NITRENDIPINE [Concomitant]
     Active Substance: NITRENDIPINE
     Indication: Blood pressure abnormal
     Route: 042
     Dates: start: 20220214, end: 20220215
  8. ACEGLUTAMIDE [Concomitant]
     Active Substance: ACEGLUTAMIDE
     Indication: Ischaemic stroke
     Route: 048
     Dates: start: 20220214, end: 20220214
  9. BUTYLPHTHALIDE [Concomitant]
     Active Substance: BUTYLPHTHALIDE
     Indication: Ischaemic stroke
     Route: 042
     Dates: start: 20220214, end: 20220214
  10. BUDESONIDE [Concomitant]
     Active Substance: BUDESONIDE
     Indication: Pneumonia
     Route: 055
     Dates: start: 20220215, end: 20220328
  11. ACETYLCYSTEINE [Concomitant]
     Active Substance: ACETYLCYSTEINE
     Indication: Pneumonia
     Route: 055
     Dates: start: 20220215, end: 20220215
  12. PANTOPRAZOLE [Concomitant]
     Active Substance: PANTOPRAZOLE
     Indication: Prophylaxis
     Route: 048
     Dates: start: 20220215, end: 20220217
  13. GLYCERIN [Concomitant]
     Active Substance: GLYCERIN
     Indication: Ischaemic stroke
     Route: 042
     Dates: start: 20220215, end: 20220215
  14. PIPERACILLIN AND TAZOBACTAM [Concomitant]
     Active Substance: PIPERACILLIN SODIUM\TAZOBACTAM SODIUM
     Indication: Pneumonia
     Route: 042
     Dates: start: 20220215, end: 20220218
  15. LIDOCAINE [Concomitant]
     Active Substance: LIDOCAINE
     Indication: Local anaesthesia
     Route: 042
     Dates: start: 20220215, end: 20220215
  16. ALBUMIN HUMAN [Concomitant]
     Active Substance: ALBUMIN HUMAN
     Indication: Dehydration
     Route: 042
  17. ALBUMIN HUMAN [Concomitant]
     Active Substance: ALBUMIN HUMAN
     Indication: Reduction of increased intracranial pressure
  18. FUROSEMIDE [Concomitant]
     Active Substance: FUROSEMIDE
     Indication: Dehydration
     Route: 042
     Dates: start: 20220215, end: 20220215
  19. FUROSEMIDE [Concomitant]
     Active Substance: FUROSEMIDE
     Indication: Reduction of increased intracranial pressure
  20. NALMEFENE [Concomitant]
     Active Substance: NALMEFENE
     Indication: Ischaemic stroke
     Route: 042
     Dates: start: 20220214

REACTIONS (4)
  - Cerebral haemorrhage [Not Recovered/Not Resolved]
  - Brain oedema [Not Recovered/Not Resolved]
  - Cerebral infarction [Not Recovered/Not Resolved]
  - Cerebral haematoma [Recovered/Resolved with Sequelae]

NARRATIVE: CASE EVENT DATE: 20220214
